FAERS Safety Report 10567768 (Version 1)
Quarter: 2014Q4

REPORT INFORMATION
  Report Type: Report from Study
  Country: CN (occurrence: CN)
  Receive Date: 20141106
  Receipt Date: 20141106
  Transmission Date: 20150529
  Serious: Yes (Death)
  Sender: FDA-Public Use
  Company Number: CN-ROCHE-1486162

PATIENT

DRUGS (1)
  1. ALTEPLASE [Suspect]
     Active Substance: ALTEPLASE
     Indication: ISCHAEMIC STROKE
     Dosage: WITH 10% FIRST BEING ADMINISTERED VIA A BOLUS (1 MIN.), AND THE REMAINING DOSAGE BEING ADMINISTERED
     Route: 042

REACTIONS (1)
  - Death [Fatal]
